FAERS Safety Report 5840689-3 (Version None)
Quarter: 2008Q3

REPORT INFORMATION
  Report Type: 
  Country: None (occurrence: None)
  Receive Date: 20080811
  Receipt Date: 20080806
  Transmission Date: 20090109
  Serious: Yes (Death, Hospitalization)
  Sender: FDA-Public Use
  Company Number: PHEH2008US06509

PATIENT
  Sex: Male

DRUGS (10)
  1. ZOMETA [Suspect]
     Indication: METASTASES TO BONE
     Dosage: 4 MG, QW3
     Route: 042
     Dates: start: 20080219, end: 20080417
  2. ENALAPRIL MALEATE [Concomitant]
     Indication: HYPERTENSION
     Dosage: 10 MG, QD
  3. HYDROCHLOROTHIAZIDE [Concomitant]
     Indication: HYPERTENSION
     Dosage: 12.5 MG, QD
  4. PRILOSEC [Concomitant]
     Indication: REFLUX GASTRITIS
     Dosage: 20 MG, QD
  5. LEVOTHYROXINE SODIUM [Concomitant]
     Indication: THYROIDECTOMY
     Dosage: 137 UG, QD
     Dates: start: 20070501
  6. OXYCONTIN [Concomitant]
     Dosage: 120 MG, UNK
  7. OXYFAST [Concomitant]
     Dosage: 20 MG, Q3H PRN
  8. SYNTHROID [Concomitant]
     Dosage: 137 UG, QD
  9. COMPAZINE [Concomitant]
     Dosage: 10 MG, Q6H
  10. MIRALAX [Concomitant]
     Dosage: 17 G, QD

REACTIONS (15)
  - ANAEMIA [None]
  - BLOOD GLUCOSE INCREASED [None]
  - BREATH SOUNDS ABNORMAL [None]
  - COUGH [None]
  - DYSPNOEA [None]
  - HAEMATOCRIT DECREASED [None]
  - HAEMOGLOBIN DECREASED [None]
  - HYPONATRAEMIA [None]
  - LUNG CANCER METASTATIC [None]
  - METASTASES TO CENTRAL NERVOUS SYSTEM [None]
  - METASTATIC NEOPLASM [None]
  - OEDEMA PERIPHERAL [None]
  - OXYGEN SATURATION DECREASED [None]
  - PNEUMONIA [None]
  - TACHYCARDIA [None]
